FAERS Safety Report 25338748 (Version 2)
Quarter: 2025Q2

REPORT INFORMATION
  Report Type: Report from Study
  Country: US (occurrence: US)
  Receive Date: 20250520
  Receipt Date: 20250624
  Transmission Date: 20250717
  Serious: No
  Sender: MALLINCKRODT
  Company Number: US-MALLINCKRODT-MNK202503018

PATIENT
  Age: 31 Year
  Sex: Female

DRUGS (1)
  1. CORTICOTROPIN [Suspect]
     Active Substance: CORTICOTROPIN
     Indication: Product used for unknown indication
     Route: 058

REACTIONS (5)
  - Sluggishness [Recovered/Resolved]
  - Illness [Unknown]
  - Injection site discolouration [Unknown]
  - Injection site bruising [Unknown]
  - Weight increased [Unknown]
